FAERS Safety Report 6760591-2 (Version None)
Quarter: 2010Q2

REPORT INFORMATION
  Report Type: 
  Country: None (occurrence: None)
  Receive Date: 20100608
  Receipt Date: 20100526
  Transmission Date: 20101027
  Serious: Yes (Other)
  Sender: FDA-Public Use
  Company Number: US-PFIZER INC-2010067223

PATIENT
  Age: 31 Year
  Sex: Female

DRUGS (2)
  1. GEODON [Suspect]
     Dosage: 40 MG, 2X/DAY
     Dates: start: 20100428
  2. GEODON [Suspect]
     Dosage: 60 MG, 2X/DAY
     Dates: start: 20100428

REACTIONS (3)
  - DEPRESSION [None]
  - DRUG EFFECT DECREASED [None]
  - FATIGUE [None]
